FAERS Safety Report 11516680 (Version 1)
Quarter: 2015Q3

REPORT INFORMATION
  Report Type: Spontaneous
  Country: CA (occurrence: CA)
  Receive Date: 20150917
  Receipt Date: 20150917
  Transmission Date: 20151125
  Serious: Yes (Life-Threatening)
  Sender: FDA-Public Use
  Company Number: CA-TEVA-593777ACC

PATIENT
  Sex: Male

DRUGS (1)
  1. ALENDRONATE [Suspect]
     Active Substance: ALENDRONATE SODIUM
     Route: 065

REACTIONS (4)
  - Cardiac arrest [Unknown]
  - Dysphagia [Unknown]
  - Dyspnoea [Unknown]
  - Drug hypersensitivity [Unknown]
